FAERS Safety Report 13189718 (Version 1)
Quarter: 2017Q1

REPORT INFORMATION
  Report Type: Spontaneous
  Country: JP (occurrence: JP)
  Receive Date: 20170206
  Receipt Date: 20170206
  Transmission Date: 20170428
  Serious: Yes (Other)
  Sender: FDA-Public Use
  Company Number: JP-MEDA-2017020013

PATIENT
  Weight: 2.82 kg

DRUGS (1)
  1. DEXTRAN [Suspect]
     Active Substance: DEXTRAN
     Route: 064

REACTIONS (2)
  - Foetal exposure during pregnancy [Recovered/Resolved]
  - Foetal heart rate decreased [Recovered/Resolved]
